FAERS Safety Report 14639968 (Version 1)
Quarter: 2018Q1

REPORT INFORMATION
  Report Type: Spontaneous
  Country: IT (occurrence: IT)
  Receive Date: 20180315
  Receipt Date: 20180315
  Transmission Date: 20180509
  Serious: Yes (Other)
  Sender: FDA-Public Use
  Company Number: IT-EISAI MEDICAL RESEARCH-EC-2018-037087

PATIENT
  Age: 30 Year
  Sex: Female
  Weight: 59 kg

DRUGS (1)
  1. HALAVEN [Suspect]
     Active Substance: ERIBULIN MESYLATE
     Indication: METAPLASTIC BREAST CARCINOMA
     Route: 041
     Dates: start: 20180228, end: 20180228

REACTIONS (1)
  - Vena cava thrombosis [Unknown]

NARRATIVE: CASE EVENT DATE: 20180306
